FAERS Safety Report 7372941-7 (Version None)
Quarter: 2011Q1

REPORT INFORMATION
  Report Type: 
  Country: None (occurrence: None)
  Receive Date: 20110324
  Receipt Date: 20110314
  Transmission Date: 20110831
  Serious: Yes (Death)
  Sender: FDA-Public Use
  Company Number: US-CELGENEUS-163-21880-11030383

PATIENT
  Sex: Female

DRUGS (8)
  1. ZOCOR [Concomitant]
     Dosage: 20 MILLIGRAM
     Route: 065
  2. COUMADIN [Concomitant]
     Route: 065
  3. LISINOPRIL [Concomitant]
     Dosage: 2.5 MILLIGRAM
     Route: 065
  4. LASIX [Concomitant]
     Dosage: 40 MILLIGRAM
     Route: 065
  5. REVLIMID [Suspect]
     Dosage: 10 MILLIGRAM
     Route: 048
     Dates: start: 20090721, end: 20110217
  6. DIGOXIN [Concomitant]
     Route: 065
  7. SPIRONOLACTONE [Concomitant]
     Dosage: 25 MILLIGRAM
     Route: 065
  8. METOPROLOL [Concomitant]
     Dosage: 25 MILLIGRAM
     Route: 065

REACTIONS (1)
  - MULTIPLE MYELOMA [None]
